FAERS Safety Report 25127541 (Version 1)
Quarter: 2025Q1

REPORT INFORMATION
  Report Type: Spontaneous
  Country: US (occurrence: US)
  Receive Date: 20250327
  Receipt Date: 20250327
  Transmission Date: 20250408
  Serious: Yes (Hospitalization)
  Sender: ROCHE
  Company Number: US-ROCHE-10000235321

PATIENT
  Age: 23 Year
  Sex: Female

DRUGS (19)
  1. CELLCEPT [Suspect]
     Active Substance: MYCOPHENOLATE MOFETIL
     Indication: Product used for unknown indication
     Route: 048
     Dates: end: 20231225
  2. LUPKYNIS [Suspect]
     Active Substance: VOCLOSPORIN
     Indication: Systemic lupus erythematosus
     Route: 048
     Dates: start: 20230214, end: 20240222
  3. WARFARIN [Suspect]
     Active Substance: WARFARIN
     Indication: Ovarian vein thrombosis
     Route: 048
     Dates: end: 20231225
  4. PREDNISONE [Concomitant]
     Active Substance: PREDNISONE
  5. TYLENOL [Concomitant]
     Active Substance: ACETAMINOPHEN
     Indication: Pain
     Route: 048
  6. FARXIGA [Concomitant]
     Active Substance: DAPAGLIFLOZIN PROPANEDIOL
     Route: 048
  7. DESONATE (DESONIDE) Cream [Concomitant]
     Dosage: 0.05 PERCENT
  8. VOLTAREN [Concomitant]
     Active Substance: DICLOFENAC SODIUM
     Dosage: GEL, 1 PERCENT
  9. EPIPEN [Concomitant]
     Active Substance: EPINEPHRINE
     Indication: Hypersensitivity
  10. PEPCID [Concomitant]
     Active Substance: FAMOTIDINE
     Indication: Dyspepsia
  11. NORCO [Concomitant]
     Active Substance: ACETAMINOPHEN\HYDROCODONE BITARTRATE
  12. PLAQUENIL [Concomitant]
     Active Substance: HYDROXYCHLOROQUINE SULFATE
     Route: 048
  13. ZOFRAN [Concomitant]
     Active Substance: ONDANSETRON HYDROCHLORIDE
     Indication: Nausea
  14. ZOFRAN [Concomitant]
     Active Substance: ONDANSETRON HYDROCHLORIDE
     Indication: Vomiting
  15. ALDACTONE [Concomitant]
     Active Substance: SPIRONOLACTONE
     Route: 048
  16. DIOVAN [Concomitant]
     Active Substance: VALSARTAN
     Route: 048
  17. BELIMUMAB [Concomitant]
     Active Substance: BELIMUMAB
     Dosage: 20 MG/ML
     Route: 058
  18. KEFLEX [Concomitant]
     Active Substance: CEPHALEXIN
     Route: 048
  19. HYGROTON (CHLORTALIDONE) [Concomitant]
     Route: 048

REACTIONS (16)
  - Anaemia of chronic disease [Unknown]
  - Epistaxis [Recovered/Resolved]
  - Vomiting [Recovered/Resolved]
  - Haematemesis [Recovered/Resolved]
  - Nausea [Recovered/Resolved]
  - Acute kidney injury [Recovering/Resolving]
  - Diarrhoea [Recovered/Resolved]
  - Weight decreased [Recovered/Resolved]
  - Metabolic acidosis [Unknown]
  - Vitamin D decreased [Unknown]
  - Hyperlipidaemia [Unknown]
  - Decreased appetite [Unknown]
  - Blood pressure increased [Unknown]
  - Anticoagulation drug level above therapeutic [Unknown]
  - Systemic lupus erythematosus [Recovered/Resolved]
  - Product prescribing issue [Unknown]

NARRATIVE: CASE EVENT DATE: 20231101
